FAERS Safety Report 13346567 (Version 2)
Quarter: 2017Q2

REPORT INFORMATION
  Report Type: Report from Study
  Country: US (occurrence: US)
  Receive Date: 20170317
  Receipt Date: 20170412
  Transmission Date: 20170830
  Serious: No
  Sender: FDA-Public Use
  Company Number: US-009507513-1702USA008019

PATIENT
  Age: 65 Year
  Sex: Male

DRUGS (8)
  1. PEMBROLIZUMAB. [Suspect]
     Active Substance: PEMBROLIZUMAB
     Indication: SQUAMOUS CELL CARCINOMA OF HEAD AND NECK
     Dosage: UNK, Q3W
     Route: 042
     Dates: start: 20170203, end: 20170203
  2. HERBALS [Concomitant]
     Active Substance: HERBALS
  3. PEMBROLIZUMAB. [Suspect]
     Active Substance: PEMBROLIZUMAB
     Dosage: UNK, Q3W
     Route: 042
     Dates: start: 20170317
  4. FOLIC ACID. [Concomitant]
     Active Substance: FOLIC ACID
  5. PANTOPRAZOLE [Concomitant]
     Active Substance: PANTOPRAZOLE
     Dosage: UNK
  6. IRON (UNSPECIFIED) [Concomitant]
     Active Substance: IRON
  7. XANAX [Concomitant]
     Active Substance: ALPRAZOLAM
  8. PEMBROLIZUMAB. [Suspect]
     Active Substance: PEMBROLIZUMAB
     Dosage: UNK, Q3W
     Route: 042
     Dates: start: 20170224, end: 20170224

REACTIONS (19)
  - Dysphagia [Unknown]
  - Anxiety [Unknown]
  - Tongue disorder [Unknown]
  - Influenza like illness [Not Recovered/Not Resolved]
  - Rash papular [Not Recovered/Not Resolved]
  - Vision blurred [Not Recovered/Not Resolved]
  - Catheter site rash [Recovered/Resolved]
  - Pain [Recovered/Resolved]
  - Chromaturia [Unknown]
  - Speech disorder [Unknown]
  - Feeling abnormal [Unknown]
  - Rash pruritic [Recovering/Resolving]
  - Therapeutic response unexpected [Unknown]
  - Vision blurred [Recovered/Resolved]
  - Oropharyngeal pain [Not Recovered/Not Resolved]
  - Nausea [Unknown]
  - Fatigue [Unknown]
  - Swollen tongue [Unknown]
  - Exercise tolerance decreased [Recovered/Resolved]

NARRATIVE: CASE EVENT DATE: 2017
